FAERS Safety Report 20146540 (Version 2)
Quarter: 2022Q1

REPORT INFORMATION
  Report Type: Report from Study
  Country: US (occurrence: US)
  Receive Date: 20211203
  Receipt Date: 20220314
  Transmission Date: 20220423
  Serious: Yes (Hospitalization, Other)
  Sender: FDA-Public Use
  Company Number: US-OTSUKA-2021_028853AA

PATIENT
  Sex: Male
  Weight: 128.82 kg

DRUGS (1)
  1. CEDAZURIDINE\DECITABINE [Suspect]
     Active Substance: CEDAZURIDINE\DECITABINE
     Indication: Refractory anaemia with ringed sideroblasts
     Dosage: 35/100 MG, QD ON DAYS 1-5 OF EACH 28 DAY CYCLE
     Route: 048
     Dates: start: 20210728, end: 20220304

REACTIONS (4)
  - Gastric infection [Unknown]
  - Blood product transfusion dependent [Unknown]
  - Haemoglobin decreased [Unknown]
  - Loss of therapeutic response [Unknown]
